FAERS Safety Report 16734220 (Version 2)
Quarter: 2019Q3

REPORT INFORMATION
  Report Type: Spontaneous
  Country: US (occurrence: US)
  Receive Date: 20190823
  Receipt Date: 20190903
  Transmission Date: 20191005
  Serious: Yes (Death, Other)
  Sender: FDA-Public Use
  Company Number: US-ASTRAZENECA-2019SF19823

PATIENT
  Sex: Male

DRUGS (2)
  1. PRILOSEC [Suspect]
     Active Substance: OMEPRAZOLE MAGNESIUM
     Dosage: VARIOUS DATES AND YEARS INCLUDING BUT NOT LIMITED TO 2006-2014
     Route: 048
  2. PRILOSEC OTC [Suspect]
     Active Substance: OMEPRAZOLE MAGNESIUM
     Dosage: VARIOUS DATES AND YEARS INCLUDING BUT NOT LIMITED TO 2006-2014
     Route: 048

REACTIONS (8)
  - Renal failure [Unknown]
  - Ventricular fibrillation [Fatal]
  - Coronary artery disease [Fatal]
  - Rebound acid hypersecretion [Unknown]
  - Acute myocardial infarction [Fatal]
  - End stage renal disease [Unknown]
  - Chronic kidney disease [Unknown]
  - Renal injury [Unknown]
